FAERS Safety Report 20851312 (Version 1)
Quarter: 2022Q2

REPORT INFORMATION
  Report Type: Report from Study
  Country: CA (occurrence: CA)
  Receive Date: 20220519
  Receipt Date: 20220519
  Transmission Date: 20220721
  Serious: Yes (Other)
  Sender: FDA-Public Use
  Company Number: CA-NOVARTISPH-NVSC2022CA101190

PATIENT
  Sex: Male
  Weight: 56 kg

DRUGS (1)
  1. PIRFENIDONE [Suspect]
     Active Substance: PIRFENIDONE
     Indication: Idiopathic pulmonary fibrosis
     Dosage: UNK
     Route: 065

REACTIONS (8)
  - Interstitial lung disease [Unknown]
  - Pulmonary fibrosis [Unknown]
  - Obstruction [Unknown]
  - Chronic obstructive pulmonary disease [Unknown]
  - Lung diffusion test decreased [Unknown]
  - Total lung capacity decreased [Unknown]
  - Functional residual capacity decreased [Unknown]
  - Emphysema [Unknown]

NARRATIVE: CASE EVENT DATE: 20211018
